FAERS Safety Report 6767915 (Version 2)
Quarter: 2012Q4

REPORT INFORMATION
  Report Type: 
  Country: US (occurrence: US)
  Receive Date: 20080923
  Receipt Date: 20121113
  Transmission Date: 20130627
  Serious: No
  Sender: FDA-Public Use
  Company Number: US-ASTRAZENECA-2008UW04111

PATIENT
  Age: 62 Year
  Sex: Female
  Weight: 82.1 kg

DRUGS (7)
  1. SEROQUEL [Suspect]
     Indication: BIPOLAR DISORDER
     Route: 048
     Dates: start: 2001
  2. SEROQUEL [Suspect]
     Indication: BIPOLAR DISORDER
     Route: 048
  3. METFORMIN [Concomitant]
     Indication: DIABETES MELLITUS
  4. CRESTOR [Concomitant]
     Route: 048
  5. LISINOPRIL [Concomitant]
     Route: 048
  6. PROPRANOLOL [Concomitant]
     Indication: TREMOR
  7. LITHIUM [Concomitant]

REACTIONS (8)
  - Diabetes mellitus [Unknown]
  - Blood pressure abnormal [Unknown]
  - Mania [Unknown]
  - Alopecia [Unknown]
  - Anger [Unknown]
  - Dizziness [Unknown]
  - Dyspnoea [Unknown]
  - Tremor [Unknown]
